FAERS Safety Report 17389319 (Version 1)
Quarter: 2020Q1

REPORT INFORMATION
  Report Type: Report from Study
  Country: None (occurrence: CA)
  Receive Date: 20200207
  Receipt Date: 20200207
  Transmission Date: 20200409
  Serious: Yes (Other)
  Sender: FDA-Public Use
  Company Number: CA-ABBVIE-20K-028-3263917-00

PATIENT
  Age: 50 Year
  Sex: Female

DRUGS (1)
  1. HUMIRA [Suspect]
     Active Substance: ADALIMUMAB
     Indication: CROHN^S DISEASE
     Route: 058
     Dates: start: 20110317

REACTIONS (7)
  - Medical device site inflammation [Unknown]
  - Abnormal faeces [Not Recovered/Not Resolved]
  - Anastomotic haemorrhage [Not Recovered/Not Resolved]
  - Venous injury [Unknown]
  - Injection site bruising [Unknown]
  - Food intolerance [Unknown]
  - Diarrhoea [Unknown]

NARRATIVE: CASE EVENT DATE: 202001
